FAERS Safety Report 7970268-3 (Version None)
Quarter: 2011Q4

REPORT INFORMATION
  Report Type: 
  Country: None (occurrence: None)
  Receive Date: 20111122
  Receipt Date: 20110719
  Transmission Date: 20120403
  Serious: Yes (Hospitalization)
  Sender: FDA-Public Use
  Company Number: PHHY2011US60045

PATIENT
  Age: 62 Year
  Sex: Female

DRUGS (9)
  1. SYNTHROID [Concomitant]
  2. FLUOXETINE HYDROCHLORIDE [Concomitant]
  3. ATENOLOL [Concomitant]
  4. GILENYA [Suspect]
     Indication: RELAPSING-REMITTING MULTIPLE SCLEROSIS
     Dosage: 0.5 MG, QD, ORAL
     Route: 048
     Dates: start: 20110628, end: 20110713
  5. ALPRAZOLAM [Concomitant]
  6. CHLORTHALIDONE [Concomitant]
  7. BUPROPION HCL [Concomitant]
  8. VITAMIN D [Concomitant]
  9. LIPITOR [Concomitant]

REACTIONS (7)
  - BACK PAIN [None]
  - DYSSTASIA [None]
  - DIZZINESS [None]
  - DELIRIUM [None]
  - BONE PAIN [None]
  - EYE PAIN [None]
  - PRESYNCOPE [None]
